FAERS Safety Report 23513363 (Version 1)
Quarter: 2024Q1

REPORT INFORMATION
  Report Type: Spontaneous
  Country: US (occurrence: None)
  Receive Date: 20240210
  Receipt Date: 20240210
  Transmission Date: 20240410
  Serious: No
  Sender: FDA-Public Use
  Company Number: None

PATIENT
  Age: 35 Year
  Sex: Female
  Weight: 48 kg

DRUGS (3)
  1. HYDROCORTISONE [Suspect]
     Active Substance: HYDROCORTISONE
     Indication: Skin irritation
     Dosage: OTHER QUANTITY : 1 APPLICATION;?FREQUENCY : DAILY;?
     Route: 061
     Dates: start: 20240201, end: 20240207
  2. METRONIDAZOLE [Concomitant]
     Active Substance: METRONIDAZOLE
  3. Avar Cream [Concomitant]

REACTIONS (1)
  - Application site burn [None]

NARRATIVE: CASE EVENT DATE: 20240207
